FAERS Safety Report 25352373 (Version 1)
Quarter: 2025Q2

REPORT INFORMATION
  Report Type: Spontaneous
  Country: US (occurrence: US)
  Receive Date: 20250523
  Receipt Date: 20250523
  Transmission Date: 20250716
  Serious: Yes (Other)
  Sender: ABBVIE
  Company Number: US-ABBVIE-6294585

PATIENT
  Sex: Female

DRUGS (1)
  1. ELAHERE [Suspect]
     Active Substance: MIRVETUXIMAB SORAVTANSINE-GYNX
     Indication: Ovarian disorder
     Dosage: FORM STRENGTH: 5 MG/ML INJECTION
     Route: 042
     Dates: start: 202409

REACTIONS (1)
  - Interstitial lung disease [Not Recovered/Not Resolved]
